FAERS Safety Report 8630319 (Version 2)
Quarter: 2014Q1

REPORT INFORMATION
  Report Type: Report from Study
  Country: SE (occurrence: SE)
  Receive Date: 20120622
  Receipt Date: 20140303
  Transmission Date: 20141002
  Serious: Yes (Other)
  Sender: FDA-Public Use
  Company Number: SE-ROCHE-1076577

PATIENT
  Sex: 0

DRUGS (2)
  1. RITUXIMAB [Suspect]
     Indication: RHEUMATOID ARTHRITIS
     Route: 065
  2. ATACICEPT [Suspect]
     Indication: RHEUMATOID ARTHRITIS
     Dosage: FOR 25 WEEKS.
     Route: 058

REACTIONS (4)
  - Transient ischaemic attack [Unknown]
  - Hypersensitivity [Unknown]
  - Gastritis [Unknown]
  - Ruptured cerebral aneurysm [Unknown]
